FAERS Safety Report 25439375 (Version 1)
Quarter: 2025Q2

REPORT INFORMATION
  Report Type: Spontaneous
  Country: US (occurrence: None)
  Receive Date: 20250614
  Receipt Date: 20250614
  Transmission Date: 20250717
  Serious: Yes (Other)
  Sender: FDA-CTU
  Company Number: None

PATIENT
  Age: 28 Year
  Sex: Female
  Weight: 49.5 kg

DRUGS (1)
  1. ZOLOFT [Suspect]
     Active Substance: SERTRALINE HYDROCHLORIDE
     Dates: start: 20151211

REACTIONS (13)
  - Drug withdrawal syndrome [None]
  - Anxiety [None]
  - Panic attack [None]
  - Hemihypoaesthesia [None]
  - Hemiparaesthesia [None]
  - Paraesthesia [None]
  - Palpitations [None]
  - Dizziness [None]
  - Disorientation [None]
  - Injury [None]
  - Feeling abnormal [None]
  - Nervous system disorder [None]
  - Inappropriate schedule of product discontinuation [None]

NARRATIVE: CASE EVENT DATE: 20250101
